FAERS Safety Report 21641484 (Version 6)
Quarter: 2023Q2

REPORT INFORMATION
  Report Type: Report from Study
  Country: US (occurrence: US)
  Receive Date: 20221125
  Receipt Date: 20230615
  Transmission Date: 20230722
  Serious: Yes (Other)
  Sender: FDA-Public Use
  Company Number: US-ABBVIE-22K-163-4410386-00

PATIENT
  Age: 63 Year
  Sex: Male

DRUGS (3)
  1. IMBRUVICA [Suspect]
     Active Substance: IBRUTINIB
     Indication: Chronic lymphocytic leukaemia
     Route: 048
     Dates: start: 20210723
  2. IMBRUVICA [Suspect]
     Active Substance: IBRUTINIB
     Indication: Chronic lymphocytic leukaemia
     Route: 048
     Dates: start: 20220314
  3. IMBRUVICA [Suspect]
     Active Substance: IBRUTINIB
     Indication: Chronic lymphocytic leukaemia
     Dosage: STOP DATE 2022
     Route: 048
     Dates: start: 20220121

REACTIONS (22)
  - Malignant melanoma [Not Recovered/Not Resolved]
  - Photosensitivity reaction [Unknown]
  - Platelet count decreased [Unknown]
  - Fatigue [Not Recovered/Not Resolved]
  - Nasopharyngitis [Unknown]
  - Rash [Unknown]
  - Impaired healing [Not Recovered/Not Resolved]
  - Seasonal affective disorder [Unknown]
  - Stomatitis [Unknown]
  - Contusion [Not Recovered/Not Resolved]
  - Headache [Not Recovered/Not Resolved]
  - Muscle spasms [Unknown]
  - Dry skin [Unknown]
  - Weight increased [Unknown]
  - Dyspepsia [Unknown]
  - Unevaluable event [Unknown]
  - Myalgia [Unknown]
  - Dizziness [Unknown]
  - Adverse drug reaction [Unknown]
  - Muscle tightness [Unknown]
  - Chest discomfort [Unknown]
  - COVID-19 [Unknown]

NARRATIVE: CASE EVENT DATE: 20230201
